FAERS Safety Report 7261031-X (Version None)
Quarter: 2011Q1

REPORT INFORMATION
  Report Type: 
  Country: None (occurrence: None)
  Receive Date: 20110130
  Receipt Date: 20101123
  Transmission Date: 20110831
  Serious: No
  Sender: FDA-Public Use
  Company Number: US-ABBOTT-10P-163-0687430-00

PATIENT
  Age: 64 Year
  Sex: Female

DRUGS (3)
  1. PREDNISONE [Concomitant]
     Indication: RHEUMATOID ARTHRITIS
     Route: 048
  2. VENTOLIN [Concomitant]
     Indication: PRODUCT USED FOR UNKNOWN INDICATION
     Route: 055
  3. HUMIRA [Suspect]
     Indication: RHEUMATOID ARTHRITIS
     Dates: start: 20100501

REACTIONS (7)
  - DRUG EFFECT DECREASED [None]
  - NASOPHARYNGITIS [None]
  - SINUSITIS [None]
  - RESPIRATORY TRACT CONGESTION [None]
  - PRODUCTIVE COUGH [None]
  - MALAISE [None]
  - PYREXIA [None]
